FAERS Safety Report 8503770-6 (Version None)
Quarter: 2012Q3

REPORT INFORMATION
  Report Type: 
  Country: None (occurrence: None)
  Receive Date: 20120711
  Receipt Date: 20120709
  Transmission Date: 20120928
  Serious: No
  Sender: FDA-Public Use
  Company Number: US-B.I. PHARMACEUTICALS,INC./RIDGEFIELD-2012-BP-15260BP

PATIENT
  Sex: Female

DRUGS (4)
  1. PRADAXA [Suspect]
     Indication: CEREBROVASCULAR ACCIDENT PROPHYLAXIS
     Dosage: 300 MG
     Route: 048
     Dates: start: 20110101
  2. SYNTHROID [Concomitant]
     Indication: HYPOTHYROIDIC GOITRE
  3. ZOCOR [Concomitant]
     Indication: BLOOD CHOLESTEROL
  4. METOPROLOL SUCCINATE [Concomitant]
     Indication: BLOOD PRESSURE

REACTIONS (2)
  - HEADACHE [None]
  - PAIN IN EXTREMITY [None]
